FAERS Safety Report 8473054-3 (Version None)
Quarter: 2012Q2

REPORT INFORMATION
  Report Type: 
  Country: None (occurrence: None)
  Receive Date: 20120627
  Receipt Date: 20120625
  Transmission Date: 20120825
  Serious: Yes (Other)
  Sender: FDA-Public Use
  Company Number: PL-ROCHE-1077021

PATIENT
  Sex: Female
  Weight: 60 kg

DRUGS (6)
  1. OSTENIL (POLAND) [Concomitant]
     Indication: OSTEOPOROSIS
     Route: 048
     Dates: start: 20100909
  2. POLTRAM [Concomitant]
     Indication: RHEUMATOID ARTHRITIS
     Route: 048
  3. PREDNISONE [Concomitant]
     Indication: RHEUMATOID ARTHRITIS
     Route: 048
     Dates: start: 20040606
  4. ORTANOL [Concomitant]
     Indication: RHEUMATOID ARTHRITIS
     Route: 048
     Dates: start: 20040606
  5. MABTHERA [Suspect]
     Indication: RHEUMATOID ARTHRITIS
     Dosage: 2X1000MG  EVERY 6-9 MONTHS
     Route: 042
     Dates: start: 20080103, end: 20110511
  6. METHOTREXATE [Concomitant]
     Indication: RHEUMATOID ARTHRITIS
     Route: 048
     Dates: start: 20040606

REACTIONS (4)
  - URINARY TRACT INFECTION [None]
  - IMMUNOGLOBULINS DECREASED [None]
  - BLOOD IMMUNOGLOBULIN M DECREASED [None]
  - BLOOD IMMUNOGLOBULIN G DECREASED [None]
